FAERS Safety Report 9993594 (Version 1)
Quarter: 2014Q1

REPORT INFORMATION
  Report Type: Spontaneous
  Country: JP (occurrence: JP)
  Receive Date: 20140310
  Receipt Date: 20140310
  Transmission Date: 20141002
  Serious: Yes (Other)
  Sender: FDA-Public Use
  Company Number: JP-MYLANLABS-2014S1004565

PATIENT
  Age: 20 Year
  Sex: Male

DRUGS (6)
  1. TACROLIMUS [Suspect]
     Indication: PROPHYLAXIS AGAINST GRAFT VERSUS HOST DISEASE
     Dosage: 0.03MG/KG/D (1.5MG/D); CONTINUOUS INFUSION STARTING ON DAY -1
     Route: 050
  2. MYCOPHENOLATE MOFETIL [Concomitant]
     Indication: PROPHYLAXIS AGAINST GRAFT VERSUS HOST DISEASE
     Dosage: 25MG/KG/D (1500MG/D); 3 TIMES A DAY STARTING ON DAY 0
     Route: 048
  3. FLUCONAZOLE [Concomitant]
     Indication: ANTIFUNGAL PROPHYLAXIS
     Route: 065
  4. URSODEOXYCHOLIC ACID [Concomitant]
     Indication: PROPHYLAXIS
     Route: 065
  5. PREDNISOLONE [Concomitant]
     Indication: PRE-ENGRAFTMENT IMMUNE REACTION
     Dosage: 1MG/KG
     Route: 065
  6. CYCLOPHOSPHAMIDE [Concomitant]
     Dosage: 120MG/KG
     Route: 065

REACTIONS (1)
  - Inappropriate antidiuretic hormone secretion [Recovering/Resolving]
